FAERS Safety Report 4296388-5 (Version None)
Quarter: 2004Q1

REPORT INFORMATION
  Report Type: 
  Country: None (occurrence: None)
  Receive Date: 20040213
  Receipt Date: 20040213
  Transmission Date: 20041129
  Serious: Yes (Hospitalization)
  Sender: FDA-Public Use
  Company Number: None

PATIENT
  Sex: Female
  Weight: 52.6173 kg

DRUGS (2)
  1. BACTRIM [Suspect]
     Indication: URINARY TRACT INFECTION
     Dosage: ONE PO BID [PRIOR TO ADMISSION]
     Route: 048
  2. M.V.I. [Concomitant]

REACTIONS (6)
  - ASTHENIA [None]
  - CHROMATURIA [None]
  - LETHARGY [None]
  - NAUSEA [None]
  - OCULAR ICTERUS [None]
  - TREMOR [None]
